FAERS Safety Report 7363008-2 (Version None)
Quarter: 2011Q1

REPORT INFORMATION
  Report Type: 
  Country: None (occurrence: None)
  Receive Date: 20110321
  Receipt Date: 20110314
  Transmission Date: 20110831
  Serious: Yes (Death, Other)
  Sender: FDA-Public Use
  Company Number: US-PFIZER INC-2011056982

PATIENT
  Sex: Male

DRUGS (1)
  1. CHANTIX [Suspect]
     Dosage: UNK
     Dates: start: 20070301

REACTIONS (4)
  - DEPRESSION [None]
  - ANXIETY [None]
  - COMPLETED SUICIDE [None]
  - ABNORMAL DREAMS [None]
